FAERS Safety Report 7030742-3 (Version None)
Quarter: 2010Q4

REPORT INFORMATION
  Report Type: 
  Country: None (occurrence: None)
  Receive Date: 20101001
  Receipt Date: 20100917
  Transmission Date: 20110411
  Serious: No
  Sender: FDA-Public Use
  Company Number: A-NJ2010-39689

PATIENT
  Age: 69 Year
  Sex: Female

DRUGS (2)
  1. VENTAVIS [Suspect]
     Indication: PULMONARY ARTERIAL HYPERTENSION
     Dosage: RESPIRATORY ; 2.5 UG, RESPIRATORY
     Route: 055
     Dates: start: 20081226, end: 20090201
  2. TRACLEER [Concomitant]

REACTIONS (1)
  - TACHYCARDIA [None]
